FAERS Safety Report 12540377 (Version 1)
Quarter: 2016Q3

REPORT INFORMATION
  Report Type: Spontaneous
  Country: US (occurrence: None)
  Receive Date: 20160707
  Receipt Date: 20160707
  Transmission Date: 20161109
  Serious: Yes (Hospitalization)
  Sender: FDA-Public Use
  Company Number: None

PATIENT
  Age: 53 Year
  Sex: Female
  Weight: 94.56 kg

DRUGS (8)
  1. OXALIPLATIN 100MG/20ML [Suspect]
     Active Substance: OXALIPLATIN
     Indication: PANCREATIC CARCINOMA
     Route: 042
     Dates: start: 20151021, end: 20151109
  2. EMEND [Concomitant]
     Active Substance: APREPITANT
  3. DECADRON [Concomitant]
     Active Substance: DEXAMETHASONE
  4. BENADRYL [Concomitant]
     Active Substance: DIPHENHYDRAMINE HYDROCHLORIDE
  5. ATROPINE. [Concomitant]
     Active Substance: ATROPINE
  6. 5FU [Concomitant]
     Active Substance: FLUOROURACIL
  7. ALOXI [Concomitant]
     Active Substance: PALONOSETRON HYDROCHLORIDE
  8. PEPCID [Concomitant]
     Active Substance: FAMOTIDINE

REACTIONS (2)
  - Stridor [None]
  - Tachypnoea [None]

NARRATIVE: CASE EVENT DATE: 20151026
